FAERS Safety Report 20128513 (Version 2)
Quarter: 2022Q1

REPORT INFORMATION
  Report Type: Spontaneous
  Country: JP (occurrence: JP)
  Receive Date: 20211130
  Receipt Date: 20220302
  Transmission Date: 20220423
  Serious: Yes (Other)
  Sender: FDA-Public Use
  Company Number: JP-ONO-2021JP029571

PATIENT
  Age: 8 Decade
  Sex: Male

DRUGS (1)
  1. OPDIVO [Suspect]
     Active Substance: NIVOLUMAB
     Indication: Gastric cancer
     Dosage: 480 MILLIGRAM
     Route: 041
     Dates: start: 20200316, end: 20200416

REACTIONS (1)
  - Malignant ascites [Recovering/Resolving]

NARRATIVE: CASE EVENT DATE: 20200416
